FAERS Safety Report 9186717 (Version 1)
Quarter: 2013Q1

REPORT INFORMATION
  Report Type: Spontaneous
  Country: US (occurrence: US)
  Receive Date: 20130325
  Receipt Date: 20130325
  Transmission Date: 20140127
  Serious: Yes (Hospitalization)
  Sender: FDA-Public Use
  Company Number: US-ELI_LILLY_AND_COMPANY-US201303000307

PATIENT
  Age: 55 Year
  Sex: Male

DRUGS (2)
  1. HUMULIN NPH [Suspect]
     Indication: TYPE 2 DIABETES MELLITUS
     Dosage: 60 U, EACH MORNING
     Dates: start: 20120120
  2. HUMULIN NPH [Suspect]
     Dosage: 36 U, EACH EVENING
     Dates: start: 20120120

REACTIONS (1)
  - Rotator cuff syndrome [Unknown]
